FAERS Safety Report 10198191 (Version 5)
Quarter: 2014Q3

REPORT INFORMATION
  Report Type: Report from Study
  Country: US (occurrence: US)
  Receive Date: 20140527
  Receipt Date: 20140904
  Transmission Date: 20150326
  Serious: Yes (Hospitalization, Other)
  Sender: FDA-Public Use
  Company Number: US-ALEXION PHARMACEUTICALS INC.-A201401960

PATIENT

DRUGS (3)
  1. SOLIRIS [Suspect]
     Active Substance: ECULIZUMAB
     Indication: HAEMOLYTIC URAEMIC SYNDROME
     Dosage: 600 MG, QW
     Route: 042
     Dates: start: 20140506
  2. SOLIRIS [Suspect]
     Active Substance: ECULIZUMAB
     Dosage: 900 MG, Q2W
     Route: 042
     Dates: start: 20140506
  3. IRON [Concomitant]
     Active Substance: IRON
     Indication: PRODUCT USED FOR UNKNOWN INDICATION
     Dosage: UNK, QW
     Route: 065
     Dates: start: 20140616

REACTIONS (15)
  - Headache [Not Recovered/Not Resolved]
  - Dizziness [Unknown]
  - Disturbance in attention [Not Recovered/Not Resolved]
  - Memory impairment [Unknown]
  - Pallor [Recovering/Resolving]
  - Repetitive speech [Recovering/Resolving]
  - Slow speech [Recovering/Resolving]
  - Asthenia [Unknown]
  - Epilepsy [Not Recovered/Not Resolved]
  - Hypotension [Unknown]
  - Hyperhidrosis [Recovering/Resolving]
  - Confusional state [Not Recovered/Not Resolved]
  - Lethargy [Recovered/Resolved]
  - Amenorrhoea [Not Recovered/Not Resolved]
  - Hypertension [Unknown]

NARRATIVE: CASE EVENT DATE: 201405
